FAERS Safety Report 6032656-4 (Version None)
Quarter: 2009Q1

REPORT INFORMATION
  Report Type: 
  Country: None (occurrence: None)
  Receive Date: 20090107
  Receipt Date: 20090107
  Transmission Date: 20090719
  Serious: Yes (Hospitalization)
  Sender: FDA-Public Use
  Company Number: None

PATIENT
  Sex: Female
  Weight: 76.6 kg

DRUGS (3)
  1. CISPLATIN [Suspect]
     Dosage: 92 MG
  2. TAXOL [Suspect]
     Dosage: 294 MG
  3. NEULASTA [Suspect]
     Dosage: 6 MG

REACTIONS (3)
  - DIARRHOEA [None]
  - NAUSEA [None]
  - VOMITING [None]
